FAERS Safety Report 16972876 (Version 1)
Quarter: 2019Q4

REPORT INFORMATION
  Report Type: Report from Study
  Country: US (occurrence: US)
  Receive Date: 20191030
  Receipt Date: 20191030
  Transmission Date: 20200122
  Serious: Yes (Hospitalization)
  Sender: FDA-Public Use
  Company Number: US-PFIZER INC-2019385509

PATIENT
  Age: 65 Year
  Sex: Male
  Weight: 90.7 kg

DRUGS (2)
  1. XELJANZ XR [Suspect]
     Active Substance: TOFACITINIB CITRATE
     Dosage: 11 MG, DAILY
     Route: 048
     Dates: start: 20181204, end: 20190726
  2. XELJANZ XR [Suspect]
     Active Substance: TOFACITINIB CITRATE
     Indication: PSORIATIC ARTHROPATHY
     Dosage: 11 MG, 1X/DAY
     Dates: start: 201707

REACTIONS (9)
  - Immune system disorder [Unknown]
  - Cerebrovascular accident [Not Recovered/Not Resolved]
  - Cellulitis [Unknown]
  - Sepsis [Unknown]
  - Spinal cord abscess [Unknown]
  - Endocarditis [Unknown]
  - Meningitis [Unknown]
  - Myocardial infarction [Unknown]
  - Infection [Not Recovered/Not Resolved]

NARRATIVE: CASE EVENT DATE: 20190726
